FAERS Safety Report 9928612 (Version 2)
Quarter: 2014Q2

REPORT INFORMATION
  Report Type: Spontaneous
  Country: IT (occurrence: IT)
  Receive Date: 20140227
  Receipt Date: 20140423
  Transmission Date: 20141212
  Serious: Yes (Hospitalization, Other)
  Sender: FDA-Public Use
  Company Number: IT-PFIZER INC-2014054969

PATIENT
  Age: 71 Year
  Sex: Female

DRUGS (5)
  1. SOLU-MEDROL [Suspect]
     Indication: TUBULOINTERSTITIAL NEPHRITIS
     Dosage: 250 MG, DAILY
     Route: 042
     Dates: start: 20140114, end: 20140116
  2. DELTACORTENE [Suspect]
     Indication: TUBULOINTERSTITIAL NEPHRITIS
     Dosage: 30 MG, DAILY
     Route: 048
     Dates: start: 20140117, end: 20140127
  3. SIMVASTATIN [Concomitant]
     Dosage: 1 DF, UNK
  4. ANTRA [Concomitant]
     Dosage: 1 DF, UNK
     Route: 048
  5. RYTMONORM [Concomitant]
     Dosage: UNK

REACTIONS (1)
  - Diabetes mellitus [Recovered/Resolved with Sequelae]
